FAERS Safety Report 18585260 (Version 1)
Quarter: 2020Q4

REPORT INFORMATION
  Report Type: Spontaneous
  Country: GB (occurrence: GB)
  Receive Date: 20201207
  Receipt Date: 20201207
  Transmission Date: 20210114
  Serious: Yes (Other)
  Sender: FDA-Public Use
  Company Number: GB-JNJFOC-20201147635

PATIENT
  Age: 46 Year
  Sex: Male

DRUGS (4)
  1. XEPLION [Interacting]
     Active Substance: PALIPERIDONE PALMITATE
  2. RISPERIDONE. [Concomitant]
     Active Substance: RISPERIDONE
  3. XEPLION [Suspect]
     Active Substance: PALIPERIDONE PALMITATE
     Indication: SCHIZOPHRENIA
     Route: 030
     Dates: start: 20201105
  4. XEPLION [Interacting]
     Active Substance: PALIPERIDONE PALMITATE

REACTIONS (5)
  - Insomnia [Not Recovered/Not Resolved]
  - Cough [Not Recovered/Not Resolved]
  - Diarrhoea [Not Recovered/Not Resolved]
  - Labelled drug-disease interaction medication error [Unknown]
  - Diabetes mellitus [Not Recovered/Not Resolved]

NARRATIVE: CASE EVENT DATE: 20201105
